FAERS Safety Report 5808876-8 (Version None)
Quarter: 2008Q3

REPORT INFORMATION
  Report Type: 
  Country: None (occurrence: None)
  Receive Date: 20080714
  Receipt Date: 20080703
  Transmission Date: 20090109
  Serious: Yes (Hospitalization, Other)
  Sender: FDA-Public Use
  Company Number: GB-JNJFOC-20080701215

PATIENT
  Age: 51 Year
  Sex: Female

DRUGS (4)
  1. INFLIXIMAB [Suspect]
     Route: 042
  2. INFLIXIMAB [Suspect]
     Indication: RHEUMATOID ARTHRITIS
     Dosage: 2 INFUSIONS ON UNSPECIFIED DATES
     Route: 042
  3. METHOTREXATE [Concomitant]
  4. SULFASALAZINE [Concomitant]

REACTIONS (1)
  - SARCOIDOSIS [None]
